FAERS Safety Report 18311737 (Version 1)
Quarter: 2020Q3

REPORT INFORMATION
  Report Type: Spontaneous
  Country: FI (occurrence: FI)
  Receive Date: 20200925
  Receipt Date: 20200925
  Transmission Date: 20201103
  Serious: Yes (Other)
  Sender: FDA-Public Use
  Company Number: FI-SHIELD TX (UK) LTD-FI-STX-20-NOR-0044

PATIENT
  Age: 76 Year
  Sex: Male

DRUGS (4)
  1. IRON [Suspect]
     Active Substance: IRON
     Indication: HAEMOGLOBIN DECREASED
     Dosage: UNK
     Route: 065
  2. VITAMIN C [Suspect]
     Active Substance: ASCORBIC ACID
     Indication: HAEMOGLOBIN DECREASED
     Dosage: UNK
     Route: 065
  3. PRIMASPAN [Suspect]
     Active Substance: ASPIRIN
     Indication: PRODUCT USED FOR UNKNOWN INDICATION
     Dosage: 1 DF, QD, STRENGTH 50 MG
     Route: 065
     Dates: start: 2017, end: 2017
  4. MAREVAN FORTE [Suspect]
     Active Substance: WARFARIN SODIUM
     Indication: ATRIAL FIBRILLATION
     Dosage: STRENGTH: 5 MG ABOUT 45 MG PER WEEK, SO 1?1,5 TABLET PER DAY
     Route: 065
     Dates: start: 2014, end: 2018

REACTIONS (5)
  - Contusion [Unknown]
  - Faeces discoloured [Unknown]
  - Haematochezia [Recovered/Resolved]
  - Carotid artery disease [Unknown]
  - Haemoglobin decreased [Not Recovered/Not Resolved]
